FAERS Safety Report 9376899 (Version 2)
Quarter: 2013Q3

REPORT INFORMATION
  Report Type: Report from Study
  Country: VE (occurrence: VE)
  Receive Date: 20130701
  Receipt Date: 20130724
  Transmission Date: 20140515
  Serious: Yes (Hospitalization)
  Sender: FDA-Public Use
  Company Number: VE-ROCHE-1240968

PATIENT
  Age: 35 Year
  Sex: Female

DRUGS (4)
  1. OMALIZUMAB [Suspect]
     Indication: ASTHMA
     Dosage: LAST DOSE PRIOR TO SAE ON 27/MAY/2013
     Route: 058
     Dates: start: 20130321
  2. OMALIZUMAB [Suspect]
     Route: 058
     Dates: start: 20130527
  3. SERETIDE [Concomitant]
  4. SINGULAIR [Concomitant]

REACTIONS (2)
  - Bronchitis [Recovered/Resolved]
  - Abdominal pain upper [Not Recovered/Not Resolved]
